FAERS Safety Report 9830606 (Version 4)
Quarter: 2014Q1

REPORT INFORMATION
  Report Type: Spontaneous
  Country: JP (occurrence: JP)
  Receive Date: 20140120
  Receipt Date: 20140321
  Transmission Date: 20141002
  Serious: Yes (Hospitalization)
  Sender: FDA-Public Use
  Company Number: JP-OTSUKA-JP-2014-10180

PATIENT
  Age: 62 Year
  Sex: Female

DRUGS (10)
  1. PLETAAL [Suspect]
     Indication: CEREBRAL INFARCTION
     Dosage: 100 MG MILLIGRAM(S), DAILY DOSE
     Route: 048
     Dates: start: 20130110, end: 20130117
  2. OKIRICON [Suspect]
     Dosage: 160 MG MILLIGRAM(S), DAILY DOSE
     Route: 041
     Dates: start: 20130110, end: 20130117
  3. NICHOLIN [Suspect]
     Dosage: 500 MG MILLIGRAM(S), DAILY DOSE
     Route: 041
     Dates: start: 20130110, end: 20130117
  4. SOLCOSERYL [Suspect]
     Dosage: 4 ML MILLILITRE(S), DAILY DOSE
     Route: 041
     Dates: start: 20130110, end: 20130117
  5. MICARDIS [Suspect]
     Dosage: 40 MG MILLIGRAM(S), DAILY DOSE
     Route: 048
     Dates: start: 20130110, end: 20130117
  6. JANUVIA [Concomitant]
     Dosage: 50 MG MILLIGRAM(S), DAILY DOSE
     Route: 048
     Dates: start: 20130110, end: 20130117
  7. CRESTOR [Concomitant]
     Dosage: 2.5 MG MILLIGRAM(S), DAILY DOSE
     Route: 048
     Dates: start: 20130110, end: 20130117
  8. LACTEC [Concomitant]
     Indication: NUTRITIONAL SUPPLEMENTATION
     Dosage: 500 ML MILLILITRE(S), DAILY DOSE
     Route: 041
     Dates: start: 20130116, end: 20130116
  9. LACTEC [Concomitant]
     Indication: DRUG-INDUCED LIVER INJURY
     Dosage: UNK
     Route: 041
     Dates: start: 20130117, end: 20130121
  10. LACTEC [Concomitant]
     Indication: RENAL DISORDER

REACTIONS (3)
  - Renal disorder [Recovered/Resolved]
  - Drug-induced liver injury [Recovered/Resolved]
  - Pyrexia [Recovered/Resolved]
